FAERS Safety Report 6488023-2 (Version None)
Quarter: 2009Q4

REPORT INFORMATION
  Report Type: 
  Country: None (occurrence: None)
  Receive Date: 20091210
  Receipt Date: 20091201
  Transmission Date: 20100525
  Serious: Yes (Hospitalization)
  Sender: FDA-Public Use
  Company Number: PHEH2009US11587

PATIENT
  Sex: Female
  Weight: 120 kg

DRUGS (2)
  1. EXJADE [Suspect]
     Indication: IRON OVERLOAD
     Dosage: 1250 DAILY
     Route: 048
  2. EXJADE [Suspect]
     Dosage: 150 MG, QD
     Route: 048
     Dates: start: 20080307, end: 20091009

REACTIONS (5)
  - ASTHENIA [None]
  - DEEP VEIN THROMBOSIS [None]
  - GAIT DISTURBANCE [None]
  - PYREXIA [None]
  - VENA CAVA FILTER INSERTION [None]
